FAERS Safety Report 8325776-2 (Version None)
Quarter: 2012Q2

REPORT INFORMATION
  Report Type: 
  Country: None (occurrence: None)
  Receive Date: 20120501
  Receipt Date: 20120418
  Transmission Date: 20120825
  Serious: No
  Sender: FDA-Public Use
  Company Number: US-BIOGENIDEC-2012BI009058

PATIENT
  Age: 53 Year
  Sex: Female

DRUGS (1)
  1. TYSABRI [Suspect]
     Indication: MULTIPLE SCLEROSIS
     Route: 042
     Dates: start: 20110809, end: 20120210

REACTIONS (15)
  - HEADACHE [None]
  - LETHARGY [None]
  - FATIGUE [None]
  - WEIGHT DECREASED [None]
  - DECREASED APPETITE [None]
  - MOOD SWINGS [None]
  - CHILLS [None]
  - PAIN IN EXTREMITY [None]
  - DIARRHOEA [None]
  - URTICARIA [None]
  - PANIC ATTACK [None]
  - ARTHRALGIA [None]
  - ABDOMINAL PAIN UPPER [None]
  - DEPRESSION [None]
  - ANXIETY [None]
